FAERS Safety Report 23270459 (Version 1)
Quarter: 2023Q4

REPORT INFORMATION
  Report Type: Spontaneous
  Country: CN (occurrence: CN)
  Receive Date: 20231207
  Receipt Date: 20231207
  Transmission Date: 20240109
  Serious: Yes (Hospitalization, Other)
  Sender: FDA-Public Use
  Company Number: CN-MLMSERVICE-20231115-4655919-1

PATIENT
  Age: 73 Year
  Sex: Male
  Weight: 47 kg

DRUGS (9)
  1. TACROLIMUS [Interacting]
     Active Substance: TACROLIMUS
     Indication: Prophylaxis against transplant rejection
     Dates: start: 2017
  2. VORICONAZOLE [Interacting]
     Active Substance: VORICONAZOLE
     Indication: Bronchopulmonary aspergillosis
     Dosage: ON THE 2ND DAY, THE DOSE WAS ADJUSTED TO 200 MG 2 TIMES/D.
     Route: 048
     Dates: start: 202208, end: 202208
  3. PREDNISONE [Concomitant]
     Active Substance: PREDNISONE
     Indication: Prophylaxis against transplant rejection
     Route: 048
     Dates: start: 2017
  4. ADRENALIN [Concomitant]
     Active Substance: EPINEPHRINE
     Indication: Haemostasis
     Route: 048
     Dates: start: 20220816
  5. LINAGLIPTIN [Concomitant]
     Active Substance: LINAGLIPTIN
     Indication: Type 2 diabetes mellitus
     Route: 048
  6. GLICLAZIDE [Concomitant]
     Active Substance: GLICLAZIDE
     Indication: Type 2 diabetes mellitus
     Dosage: 80 MG 3 TIMES/D
     Route: 048
  7. VORICONAZOLE [Interacting]
     Active Substance: VORICONAZOLE
     Indication: Bronchopulmonary aspergillosis
     Dosage: 400 MG ORALLY TWICE ON THE FIRST DAY
     Route: 048
     Dates: start: 202208, end: 202208
  8. VORICONAZOLE [Interacting]
     Active Substance: VORICONAZOLE
     Indication: Aspergillus infection
     Dosage: ON THE 2ND DAY, THE DOSE WAS ADJUSTED TO 200 MG 2 TIMES/D.
     Route: 048
     Dates: start: 202208, end: 202208
  9. TACROLIMUS [Interacting]
     Active Substance: TACROLIMUS
     Indication: Prophylaxis against transplant rejection
     Dosage: DOSAGE OF TACROLIMUS IN THE PAST YEAR WAS 2.5 MG, 2 TIMES/D
     Route: 048
     Dates: start: 2017

REACTIONS (4)
  - Drug level increased [Recovered/Resolved]
  - Toxicity to various agents [Recovered/Resolved]
  - Drug interaction [Recovered/Resolved]
  - Acute kidney injury [Recovered/Resolved]

NARRATIVE: CASE EVENT DATE: 20220801
